FAERS Safety Report 6436794-3 (Version None)
Quarter: 2009Q4

REPORT INFORMATION
  Report Type: 
  Country: None (occurrence: None)
  Receive Date: 20091109
  Receipt Date: 20091027
  Transmission Date: 20100525
  Serious: Yes (Death)
  Sender: FDA-Public Use
  Company Number: 2009AL006880

PATIENT
  Age: 58 Year
  Sex: Male

DRUGS (7)
  1. ALPRAZOLAM [Suspect]
  2. FAMOTIDINE [Suspect]
  3. FLUOXETINE [Suspect]
  4. ZYPREXA [Concomitant]
  5. DEPAKOTE [Concomitant]
  6. HYDROCODONE [Concomitant]
  7. AUGMENTIN [Concomitant]

REACTIONS (6)
  - CONTUSION [None]
  - CORONARY ARTERY DISEASE [None]
  - DRUG TOXICITY [None]
  - FOREIGN BODY [None]
  - HEPATIC CIRRHOSIS [None]
  - RIB FRACTURE [None]
